FAERS Safety Report 20825933 (Version 2)
Quarter: 2022Q2

REPORT INFORMATION
  Report Type: Report from Study
  Country: US (occurrence: None)
  Receive Date: 20220513
  Receipt Date: 20220629
  Transmission Date: 20220721
  Serious: Yes (Hospitalization)
  Sender: FDA-Public Use
  Company Number: 2022A179958

PATIENT
  Sex: Female
  Weight: 88.9 kg

DRUGS (17)
  1. CALQUENCE [Suspect]
     Active Substance: ACALABRUTINIB
     Indication: Chronic lymphocytic leukaemia
     Route: 048
     Dates: start: 20210905
  2. ATORVASTATIN [Concomitant]
     Active Substance: ATORVASTATIN
  3. CYMBALTA [Concomitant]
     Active Substance: DULOXETINE HYDROCHLORIDE
  4. DIAZEPAM [Concomitant]
     Active Substance: DIAZEPAM
  5. FOSAMAX [Concomitant]
     Active Substance: ALENDRONATE SODIUM
  6. GABAPENTIN [Concomitant]
     Active Substance: GABAPENTIN
  7. LASIX [Concomitant]
     Active Substance: FUROSEMIDE
  8. ACETAMINOPHEN\OXYCODONE HYDROCHLORIDE [Concomitant]
     Active Substance: ACETAMINOPHEN\OXYCODONE HYDROCHLORIDE
  9. PEPCID [Concomitant]
     Active Substance: FAMOTIDINE
  10. POTASSIUM [Concomitant]
     Active Substance: POTASSIUM
  11. PRAVASTATIN [Concomitant]
     Active Substance: PRAVASTATIN
  12. PREDNISONE [Concomitant]
     Active Substance: PREDNISONE
  13. PROMACTA [Concomitant]
     Active Substance: ELTROMBOPAG OLAMINE
  14. PROZAC [Concomitant]
     Active Substance: FLUOXETINE HYDROCHLORIDE
  15. SYNTHROID [Concomitant]
     Active Substance: LEVOTHYROXINE SODIUM
  16. TEMAZEPAM [Concomitant]
     Active Substance: TEMAZEPAM
  17. XARELTO [Concomitant]
     Active Substance: RIVAROXABAN

REACTIONS (3)
  - Hypotension [Not Recovered/Not Resolved]
  - Infection [Recovering/Resolving]
  - Urinary tract infection [Not Recovered/Not Resolved]
